FAERS Safety Report 20170740 (Version 1)
Quarter: 2021Q4

REPORT INFORMATION
  Report Type: Spontaneous
  Country: US (occurrence: None)
  Receive Date: 20211210
  Receipt Date: 20211210
  Transmission Date: 20220303
  Serious: Yes (Hospitalization)
  Sender: FDA-Public Use
  Company Number: None

PATIENT
  Age: 77 Year
  Sex: Male

DRUGS (1)
  1. APIXABAN [Suspect]
     Active Substance: APIXABAN
     Indication: Atrial fibrillation
     Dosage: FREQUENCY : TWICE A DAY;?
     Route: 048

REACTIONS (13)
  - Metaplasia [None]
  - Anaemia [None]
  - Upper gastrointestinal haemorrhage [None]
  - Agitation [None]
  - Delirium [None]
  - Helicobacter gastritis [None]
  - Gastrooesophageal reflux disease [None]
  - Haemorrhoids [None]
  - Rectal polyp [None]
  - Duodenitis [None]
  - Urinary tract infection [None]
  - Pseudomonas infection [None]
  - Gastritis [None]

NARRATIVE: CASE EVENT DATE: 20210422
